FAERS Safety Report 7812797-9 (Version None)
Quarter: 2011Q4

REPORT INFORMATION
  Report Type: 
  Country: None (occurrence: None)
  Receive Date: 20111013
  Receipt Date: 20111007
  Transmission Date: 20120403
  Serious: Yes (Death, Other)
  Sender: FDA-Public Use
  Company Number: US-AMGEN-US355260

PATIENT
  Age: 65 Year
  Sex: Female

DRUGS (7)
  1. NPLATE [Suspect]
     Dates: start: 20090410, end: 20090703
  2. CORTICOSTEROID NOS [Concomitant]
     Dosage: UNK UNK, UNK
     Route: 065
     Dates: start: 20090323
  3. RITUXIMAB [Concomitant]
     Dosage: UNK UNK, UNK
     Route: 065
     Dates: start: 20090301
  4. NPLATE [Suspect]
     Dosage: 500 MUG, UNK
     Dates: start: 20090605, end: 20090702
  5. NPLATE [Suspect]
     Indication: IDIOPATHIC THROMBOCYTOPENIC PURPURA
     Dosage: 10 MUG/KG, UNK
  6. NPLATE [Suspect]
     Dosage: 1 MUG/KG, QWK
     Route: 058
     Dates: start: 20090410
  7. IMMUNOGLOBULINS [Concomitant]
     Route: 042

REACTIONS (5)
  - MYELODYSPLASTIC SYNDROME [None]
  - ACUTE MYELOID LEUKAEMIA [None]
  - DRUG INEFFECTIVE [None]
  - THERAPEUTIC RESPONSE DECREASED [None]
  - ARRHYTHMIA [None]
